FAERS Safety Report 25422549 (Version 1)
Quarter: 2025Q2

REPORT INFORMATION
  Report Type: Spontaneous
  Country: US (occurrence: None)
  Receive Date: 20250610
  Receipt Date: 20250610
  Transmission Date: 20250716
  Serious: Yes (Hospitalization)
  Sender: FDA-CTU
  Company Number: None

PATIENT
  Age: 84 Year
  Sex: Male
  Weight: 85 kg

DRUGS (1)
  1. WARFARIN SODIUM [Suspect]
     Active Substance: WARFARIN SODIUM
     Indication: Hypercoagulation
     Route: 048
     Dates: start: 20120525

REACTIONS (6)
  - Anaemia [None]
  - Oedema [None]
  - Fatigue [None]
  - Gastrointestinal haemorrhage [None]
  - International normalised ratio decreased [None]
  - Therapy cessation [None]

NARRATIVE: CASE EVENT DATE: 20241110
